FAERS Safety Report 5134660-7 (Version None)
Quarter: 2006Q4

REPORT INFORMATION
  Report Type: 
  Country: None (occurrence: None)
  Receive Date: 20061025
  Receipt Date: 20061019
  Transmission Date: 20070319
  Serious: Yes (Hospitalization)
  Sender: FDA-Public Use
  Company Number: 467310

PATIENT
  Age: 63 Year
  Sex: Male

DRUGS (13)
  1. CARVEDILOL [Suspect]
     Route: 048
     Dates: start: 20040901
  2. ALDACTONE [Concomitant]
  3. DIOVAN [Concomitant]
  4. LASIX [Concomitant]
  5. MAINTATE [Concomitant]
  6. NITRODERM [Concomitant]
  7. HEPARIN [Concomitant]
  8. LASIX [Concomitant]
  9. MEVALOTIN [Concomitant]
  10. ASPIRIN [Concomitant]
  11. ALLOPURINOL [Concomitant]
  12. WARFARIN SODIUM [Concomitant]
  13. AMIODARONE HCL [Concomitant]

REACTIONS (2)
  - ARRHYTHMIA [None]
  - LOSS OF CONSCIOUSNESS [None]
